FAERS Safety Report 26187158 (Version 1)
Quarter: 2025Q4

REPORT INFORMATION
  Report Type: Report from Study
  Country: KR (occurrence: KR)
  Receive Date: 20251222
  Receipt Date: 20251222
  Transmission Date: 20260118
  Serious: Yes (Death)
  Sender: ABBVIE
  Company Number: KR-PFIZER INC-PV202500148239

PATIENT
  Age: 65 Year
  Sex: Female
  Weight: 47 kg

DRUGS (5)
  1. AVIBACTAM SODIUM\CEFTAZIDIME [Suspect]
     Active Substance: AVIBACTAM SODIUM\CEFTAZIDIME
     Indication: Abdominal infection
     Dosage: 7.5 G, 3X/DAY (TID)
     Route: 042
     Dates: start: 20251126
  2. AMBISOME [Concomitant]
     Active Substance: AMPHOTERICIN B
     Indication: Febrile neutropenia
     Dosage: UNK
     Route: 042
     Dates: start: 20251127, end: 20251201
  3. PREPENEM [Concomitant]
     Indication: Febrile neutropenia
     Dosage: UNK
     Route: 042
     Dates: start: 20251105, end: 20251118
  4. MEROPENEM [Concomitant]
     Active Substance: MEROPENEM
     Indication: Bacteriuria
     Dosage: UNK
     Route: 042
     Dates: start: 20251125, end: 20251125
  5. CEFEPIME HYDROCHLORIDE [Concomitant]
     Active Substance: CEFEPIME HYDROCHLORIDE
     Indication: Febrile neutropenia
     Dosage: UNK
     Route: 042
     Dates: start: 20251120, end: 20251124

REACTIONS (1)
  - Multiple organ dysfunction syndrome [Fatal]

NARRATIVE: CASE EVENT DATE: 20251129
